FAERS Safety Report 8549839-1 (Version None)
Quarter: 2012Q3

REPORT INFORMATION
  Report Type: 
  Country: None (occurrence: None)
  Receive Date: 20120720
  Receipt Date: 20120720
  Transmission Date: 20120928
  Serious: Yes (Hospitalization)
  Sender: FDA-Public Use
  Company Number: None

PATIENT
  Age: 66 Year
  Sex: Male
  Weight: 60.9 kg

DRUGS (1)
  1. GLYBURIDE [Suspect]
     Indication: TYPE 2 DIABETES MELLITUS
     Dosage: 2.5 MG EVERY DAY PO
     Route: 048
     Dates: start: 20110519, end: 20120717

REACTIONS (2)
  - HYPOGLYCAEMIA [None]
  - MENTAL STATUS CHANGES [None]
